FAERS Safety Report 5721054-6 (Version None)
Quarter: 2008Q2

REPORT INFORMATION
  Report Type: 
  Country: None (occurrence: None)
  Receive Date: 20080429
  Receipt Date: 20080416
  Transmission Date: 20081010
  Serious: Yes (Other)
  Sender: FDA-Public Use
  Company Number: US-AMGEN-QUU274788

PATIENT
  Sex: Male

DRUGS (2)
  1. ENBREL [Suspect]
     Indication: PSORIATIC ARTHROPATHY
     Route: 058
     Dates: start: 20070702
  2. METHOTREXATE [Concomitant]
     Dates: start: 20070702

REACTIONS (4)
  - BALANCE DISORDER [None]
  - DYSARTHRIA [None]
  - DYSPHONIA [None]
  - TREMOR [None]
